FAERS Safety Report 12432326 (Version 1)
Quarter: 2016Q2

REPORT INFORMATION
  Report Type: Spontaneous
  Country: US (occurrence: None)
  Receive Date: 20160602
  Receipt Date: 20160602
  Transmission Date: 20160815
  Serious: Yes (Hospitalization)
  Sender: FDA-Public Use
  Company Number: None

PATIENT
  Age: 73 Year
  Sex: Male
  Weight: 121 kg

DRUGS (22)
  1. ATORVASTATIN [Concomitant]
     Active Substance: ATORVASTATIN
  2. CARVEDILOL. [Concomitant]
     Active Substance: CARVEDILOL
  3. COLACE [Concomitant]
     Active Substance: DOCUSATE SODIUM
  4. TOBREX [Concomitant]
     Active Substance: TOBRAMYCIN
  5. BUMEX [Concomitant]
     Active Substance: BUMETANIDE
  6. DIGOXIN. [Concomitant]
     Active Substance: DIGOXIN
  7. LASIX [Concomitant]
     Active Substance: FUROSEMIDE
  8. MIRALAX [Concomitant]
     Active Substance: POLYETHYLENE GLYCOL 3350
  9. ASA [Concomitant]
     Active Substance: ASPIRIN
  10. POTASSIUM CHLORIDE. [Concomitant]
     Active Substance: POTASSIUM CHLORIDE
  11. ZOLOFT [Concomitant]
     Active Substance: SERTRALINE HYDROCHLORIDE
  12. PRAVASTATIN [Concomitant]
     Active Substance: PRAVASTATIN\PRAVASTATIN SODIUM
  13. REFRESH [Concomitant]
     Active Substance: UNSPECIFIED INGREDIENT
  14. RESTORIL [Concomitant]
     Active Substance: TEMAZEPAM
  15. MULTIVITAMIN [Concomitant]
     Active Substance: VITAMINS
  16. COAL TAR-SALICYLIC ACID [Concomitant]
  17. ALDACTONE [Concomitant]
     Active Substance: SPIRONOLACTONE
  18. APIXABAN [Suspect]
     Active Substance: APIXABAN
     Indication: ATRIAL FIBRILLATION
     Route: 048
     Dates: start: 20111106, end: 20160224
  19. EPLERENONE. [Concomitant]
     Active Substance: EPLERENONE
  20. TIKOSYN [Concomitant]
     Active Substance: DOFETILIDE
  21. LEVOTHYROXINE. [Concomitant]
     Active Substance: LEVOTHYROXINE
  22. METOPROLOL. [Concomitant]
     Active Substance: METOPROLOL

REACTIONS (11)
  - Palpitations [None]
  - Treatment failure [None]
  - Dry eye [None]
  - Cardiac failure acute [None]
  - Ventricular tachycardia [None]
  - Fall [None]
  - Rhabdomyolysis [None]
  - Hypotension [None]
  - Eyelid margin crusting [None]
  - Ocular rosacea [None]
  - Macular hole [None]

NARRATIVE: CASE EVENT DATE: 20160107
